FAERS Safety Report 5783107-6 (Version None)
Quarter: 2008Q2

REPORT INFORMATION
  Report Type: 
  Country: None (occurrence: None)
  Receive Date: 20080619
  Receipt Date: 20080610
  Transmission Date: 20081010
  Serious: Yes (Hospitalization, Other)
  Sender: FDA-Public Use
  Company Number: 2003JP006343

PATIENT
  Age: 53 Year
  Sex: Male

DRUGS (3)
  1. PROGRAF [Suspect]
     Indication: LIVER TRANSPLANT
     Dosage: 1.5 MG, BID, ORAL
     Route: 048
     Dates: start: 20010422, end: 20030325
  2. LAMIVUDINE [Concomitant]
  3. HEBSBULIN [Concomitant]

REACTIONS (7)
  - BIOPSY LIVER ABNORMAL [None]
  - HAIRY CELL LEUKAEMIA [None]
  - HEPATIC ENZYME INCREASED [None]
  - IMMUNOSUPPRESSANT DRUG LEVEL INCREASED [None]
  - LIVER TRANSPLANT REJECTION [None]
  - LYMPHOMA [None]
  - SPLENOMEGALY [None]
